FAERS Safety Report 25553306 (Version 1)
Quarter: 2025Q3

REPORT INFORMATION
  Report Type: Spontaneous
  Country: EU (occurrence: EU)
  Receive Date: 20250715
  Receipt Date: 20250715
  Transmission Date: 20251021
  Serious: Yes (Hospitalization)
  Sender: JOHNSON AND JOHNSON
  Company Number: None

PATIENT
  Age: 30 Year
  Sex: Female

DRUGS (4)
  1. TOPIRAMATE [Suspect]
     Active Substance: TOPIRAMATE
     Indication: Bipolar disorder
     Route: 048
     Dates: start: 20250505
  2. LEVOTHYROXINE (1842A) [Concomitant]
     Indication: Hypothyroidism
     Route: 048
     Dates: start: 20160101
  3. OLANZAPINE (2770A) [Concomitant]
     Indication: Bipolar disorder
     Route: 048
     Dates: start: 20110101
  4. PAROXETINE (2586A) [Concomitant]
     Indication: Bipolar disorder
     Route: 048
     Dates: start: 20110101

REACTIONS (1)
  - Hepatocellular injury [Recovering/Resolving]

NARRATIVE: CASE EVENT DATE: 20250501
